FAERS Safety Report 7783725-X (Version None)
Quarter: 2011Q3

REPORT INFORMATION
  Report Type: 
  Country: None (occurrence: None)
  Receive Date: 20110928
  Receipt Date: 20110906
  Transmission Date: 20111222
  Serious: No
  Sender: FDA-Public Use
  Company Number: US-ROXANE LABORATORIES, INC.-2011-RO-00792RO

PATIENT
  Sex: Female
  Weight: 66 kg

DRUGS (2)
  1. OXYMORPHONE HYDROCHLORIDE [Suspect]
     Indication: PAIN
     Dosage: 40 MG
  2. MS CONTIN [Concomitant]
     Indication: PAIN
     Dosage: 240 MG

REACTIONS (1)
  - DRUG INEFFECTIVE [None]
